FAERS Safety Report 5445687-X (Version None)
Quarter: 2007Q3

REPORT INFORMATION
  Report Type: 
  Country: None (occurrence: None)
  Receive Date: 20070904
  Receipt Date: 20070822
  Transmission Date: 20080115
  Serious: Yes (Life-Threatening, Hospitalization)
  Sender: FDA-Public Use
  Company Number: 07-0081

PATIENT
  Age: 43 Year
  Sex: Male
  Weight: 72.5755 kg

DRUGS (2)
  1. SULFAMETHOXAZOLE AND TRIMETHOPRIM [Suspect]
     Indication: SUBCUTANEOUS ABSCESS
     Dosage: 800/160 1 PO BID (TOOK 12 TAB)
     Route: 048
     Dates: start: 20070816
  2. METHADONE [Concomitant]

REACTIONS (12)
  - DRY MOUTH [None]
  - FLANK PAIN [None]
  - FURUNCLE [None]
  - MOBILITY DECREASED [None]
  - MUSCLE SPASMS [None]
  - NAUSEA [None]
  - PNEUMONIA [None]
  - PULMONARY EMBOLISM [None]
  - RHINORRHOEA [None]
  - SCREAMING [None]
  - SOMNOLENCE [None]
  - STAPHYLOCOCCAL INFECTION [None]
